FAERS Safety Report 13429441 (Version 5)
Quarter: 2017Q2

REPORT INFORMATION
  Report Type: Spontaneous
  Country: AU (occurrence: AU)
  Receive Date: 20170411
  Receipt Date: 20170510
  Transmission Date: 20170830
  Serious: Yes (Other)
  Sender: FDA-Public Use
  Company Number: AU-009507513-1704AUS003875

PATIENT
  Sex: Male

DRUGS (7)
  1. ISENTRESS [Suspect]
     Active Substance: RALTEGRAVIR POTASSIUM
     Dosage: 800 MG TWICE DAILY
     Route: 048
     Dates: start: 2016
  2. ISENTRESS [Suspect]
     Active Substance: RALTEGRAVIR POTASSIUM
     Indication: HIV INFECTION
     Dosage: 400 UNK, BID
     Dates: start: 201201, end: 2016
  3. DARUNAVIR [Concomitant]
     Active Substance: DARUNAVIR
     Dosage: 800/R, BID
     Dates: start: 2016
  4. ISENTRESS [Suspect]
     Active Substance: RALTEGRAVIR POTASSIUM
     Dosage: 800 MG AM; 400 MG PM
     Route: 048
     Dates: start: 2016, end: 2016
  5. ETRAVIRINE [Concomitant]
     Active Substance: ETRAVIRINE
     Indication: HIV INFECTION
     Dosage: 200 (UNITS NOT PROVIDED) BID
     Dates: start: 201201
  6. DARUNAVIR [Concomitant]
     Active Substance: DARUNAVIR
     Indication: HIV INFECTION
     Dosage: 600 R, BID
     Dates: start: 201201, end: 2016
  7. DARUNAVIR [Concomitant]
     Active Substance: DARUNAVIR
     Dosage: 600/R AM; 800/R PM, BID
     Dates: start: 2016, end: 2016

REACTIONS (5)
  - Off label use [Unknown]
  - HIV-associated neurocognitive disorder [Unknown]
  - Drug level increased [Unknown]
  - Blood HIV RNA increased [Recovering/Resolving]
  - Myalgia [Unknown]

NARRATIVE: CASE EVENT DATE: 2014
